FAERS Safety Report 12115864 (Version 1)
Quarter: 2016Q1

REPORT INFORMATION
  Report Type: Spontaneous
  Country: US (occurrence: US)
  Receive Date: 20160225
  Receipt Date: 20160225
  Transmission Date: 20160526
  Serious: No
  Sender: FDA-Public Use
  Company Number: US-GLAXOSMITHKLINE-US2016GSK025157

PATIENT
  Age: 13 Year
  Sex: Female
  Weight: 41.72 kg

DRUGS (4)
  1. LAMICTAL [Suspect]
     Active Substance: LAMOTRIGINE
     Dosage: 150 MG, QD
  2. LAMICTAL [Suspect]
     Active Substance: LAMOTRIGINE
     Indication: EPILEPSY
     Dosage: UNK UNK, U
  3. LAMICTAL [Suspect]
     Active Substance: LAMOTRIGINE
     Indication: PETIT MAL EPILEPSY
     Dosage: 150 MG, QD
     Dates: start: 2014
  4. CELONTIN [Suspect]
     Active Substance: METHSUXIMIDE
     Indication: PRODUCT USED FOR UNKNOWN INDICATION
     Dosage: UNK, U
     Dates: start: 20160115, end: 20160117

REACTIONS (5)
  - Abdominal discomfort [Unknown]
  - Abdominal pain upper [Unknown]
  - Dizziness [Recovered/Resolved]
  - Vomiting [Recovered/Resolved]
  - Flatulence [Recovering/Resolving]

NARRATIVE: CASE EVENT DATE: 20160118
